FAERS Safety Report 11240549 (Version 1)
Quarter: 2015Q3

REPORT INFORMATION
  Report Type: Spontaneous
  Country: IT (occurrence: IT)
  Receive Date: 20150706
  Receipt Date: 20150706
  Transmission Date: 20151125
  Serious: Yes (Hospitalization)
  Sender: FDA-Public Use
  Company Number: IT-PFIZER INC-2015218992

PATIENT
  Age: 64 Year
  Sex: Female

DRUGS (3)
  1. TAVOR [Suspect]
     Active Substance: LORAZEPAM
     Indication: ANXIETY
     Dosage: 3.25 MG, DAILY
     Route: 048
  2. PAROXETIN ACTAVIS [Concomitant]
     Indication: DEPRESSION
     Dosage: 20 MG, UNK
     Route: 048
  3. XANAX [Suspect]
     Active Substance: ALPRAZOLAM
     Indication: ANXIETY
     Dosage: 0.25 MG, DAILY
     Route: 048

REACTIONS (4)
  - Decreased appetite [Unknown]
  - Vomiting [Unknown]
  - Constipation [Unknown]
  - Bradyphrenia [Unknown]

NARRATIVE: CASE EVENT DATE: 20150224
